FAERS Safety Report 16759213 (Version 1)
Quarter: 2019Q3

REPORT INFORMATION
  Report Type: Spontaneous
  Country: JO (occurrence: JO)
  Receive Date: 20190830
  Receipt Date: 20190830
  Transmission Date: 20191005
  Serious: Yes (Hospitalization, Other)
  Sender: FDA-Public Use
  Company Number: JO-SA-2019SA229544

PATIENT
  Age: 9 Month
  Sex: Female

DRUGS (14)
  1. CAPTOPRIL. [Concomitant]
     Active Substance: CAPTOPRIL
     Indication: HYPERTENSION
     Dosage: 7.5 MG, TID
     Route: 048
     Dates: start: 20190718, end: 20190814
  2. METHYLPREDNISOLONE. [Concomitant]
     Active Substance: METHYLPREDNISOLONE
     Indication: PREMEDICATION
     Dosage: 0.5 MG/KG
  3. MICAFUNGIN. [Concomitant]
     Active Substance: MICAFUNGIN SODIUM
     Indication: ANTIFUNGAL TREATMENT
     Dosage: 3 MG/KG, QD
     Route: 042
     Dates: start: 20190806
  4. RANITIDINE. [Concomitant]
     Active Substance: RANITIDINE
     Indication: GASTROINTESTINAL DISORDER PROPHYLAXIS
     Dosage: 1 MG/KG, Q8H
     Route: 042
     Dates: start: 20190624
  5. IPRATROPIUM;SALBUTAMOL [Concomitant]
     Active Substance: ALBUTEROL\IPRATROPIUM
     Indication: BRONCHIAL HYPERREACTIVITY
     Dosage: 1.25 ML, QD
     Dates: start: 20190628
  6. ACYCLOVIR [ACICLOVIR] [Concomitant]
     Active Substance: ACYCLOVIR
     Indication: ANTIVIRAL TREATMENT
     Dosage: 10 MG/KG, BID
     Route: 048
     Dates: start: 20190711, end: 20190814
  7. DOMPERIDONE [Concomitant]
     Active Substance: DOMPERIDONE
     Indication: REGURGITATION
     Dosage: 0.4 MG/KG, TID
     Route: 048
     Dates: start: 20190626, end: 20190814
  8. PHENOBARBITONE [PHENOBARBITAL] [Concomitant]
     Active Substance: PHENOBARBITAL
     Indication: SEIZURE
     Dosage: 12.5 MG, BID
     Route: 048
     Dates: start: 20190725, end: 20190814
  9. THYMOGLOBULINE [Suspect]
     Active Substance: LAPINE T-LYMPHOCYTE IMMUNE GLOBULIN
     Indication: BONE MARROW CONDITIONING REGIMEN
     Dosage: 2.5MG/KG/DOSE TOOK 5 HOURS OF THE INFUSION ON DAY 1
     Route: 042
     Dates: start: 20190814, end: 20190814
  10. CEFEPIME [Concomitant]
     Active Substance: CEFEPIME HYDROCHLORIDE
     Indication: ANTIBIOTIC PROPHYLAXIS
     Dosage: 50 MG/KG, Q8H
     Route: 042
     Dates: start: 20190807
  11. BUDESONIDE. [Concomitant]
     Active Substance: BUDESONIDE
     Indication: BRONCHIAL HYPERREACTIVITY
     Dosage: 0.5 MG, BID
     Dates: start: 20190701
  12. PARACETAMOL [Concomitant]
     Active Substance: ACETAMINOPHEN
     Indication: PREMEDICATION
     Dosage: 10 MG/KG
  13. MONTELUKAST [Concomitant]
     Active Substance: MONTELUKAST SODIUM
     Indication: BRONCHIAL HYPERREACTIVITY
     Dosage: 4 MG, QD
     Route: 048
     Dates: start: 20190724, end: 20190814
  14. CHLORPHENAMINE [Concomitant]
     Active Substance: CHLORPHENIRAMINE MALEATE
     Dosage: 0.087 MG/KG

REACTIONS (7)
  - Cardiac arrest [Recovering/Resolving]
  - Bruxism [Recovering/Resolving]
  - Seizure [Recovering/Resolving]
  - Tachycardia [Recovering/Resolving]
  - Unresponsive to stimuli [Recovering/Resolving]
  - Muscle spasticity [Recovering/Resolving]
  - Anaphylactic reaction [Unknown]

NARRATIVE: CASE EVENT DATE: 20190814
